FAERS Safety Report 5096325-X (Version None)
Quarter: 2006Q3

REPORT INFORMATION
  Report Type: 
  Country: None (occurrence: None)
  Receive Date: 20060905
  Receipt Date: 20060830
  Transmission Date: 20061208
  Serious: Yes (Other)
  Sender: FDA-Public Use
  Company Number: PHBS2006JP13094

PATIENT
  Age: 47 Year
  Sex: Male

DRUGS (5)
  1. STARSIS [Suspect]
     Dosage: 270 MG/DAY
     Route: 048
  2. LIPITOR [Suspect]
     Dosage: 10 MG/DAY
     Route: 048
     Dates: start: 20060414, end: 20060701
  3. SANOREX [Suspect]
     Dosage: 1 MG/DAY
     Route: 048
     Dates: start: 20060414, end: 20060701
  4. VOGLIBOSE [Concomitant]
     Dosage: 0.6 MG, UNK
  5. NU-LOTAN [Concomitant]
     Dosage: 50 MG, UNK

REACTIONS (3)
  - ALANINE AMINOTRANSFERASE INCREASED [None]
  - ASPARTATE AMINOTRANSFERASE INCREASED [None]
  - WEIGHT DECREASED [None]
